FAERS Safety Report 8821971 (Version 2)
Quarter: 2012Q4

REPORT INFORMATION
  Report Type: 
  Country: US (occurrence: US)
  Receive Date: 20121003
  Receipt Date: 20121220
  Transmission Date: 20130627
  Serious: No
  Sender: FDA-Public Use
  Company Number: US-BIOGENIDEC-2012BI040859

PATIENT
  Age: 40 Year
  Sex: Female

DRUGS (2)
  1. TYSABRI [Suspect]
     Indication: MULTIPLE SCLEROSIS
     Route: 042
     Dates: start: 20120912
  2. AVONEX [Concomitant]
     Indication: MULTIPLE SCLEROSIS
     Route: 030
     Dates: start: 20010323

REACTIONS (5)
  - Decreased appetite [Not Recovered/Not Resolved]
  - Contusion [Recovered/Resolved]
  - Poor venous access [Recovered/Resolved]
  - Joint stiffness [Recovered/Resolved]
  - Asthenia [Recovered/Resolved]
